FAERS Safety Report 6656512-3 (Version None)
Quarter: 2010Q1

REPORT INFORMATION
  Report Type: 
  Country: None (occurrence: None)
  Receive Date: 20100324
  Receipt Date: 20100315
  Transmission Date: 20100710
  Serious: Yes (Other)
  Sender: FDA-Public Use
  Company Number: DEP_00348_2010

PATIENT
  Sex: Female

DRUGS (5)
  1. GLUMETZA [Suspect]
     Indication: DIABETES MELLITUS
     Dosage: 500 MG TID ORAL
     Route: 048
     Dates: start: 20100101, end: 20100310
  2. GLUMETZA [Suspect]
     Indication: DIABETES MELLITUS
     Dosage: 500 MG 1X ORAL
     Route: 048
     Dates: start: 20100314, end: 20100314
  3. WELLBUTRIN XL [Concomitant]
  4. PROZAC /00724402/ [Concomitant]
  5. INSULIN [Concomitant]

REACTIONS (3)
  - CHEST DISCOMFORT [None]
  - DYSPNOEA [None]
  - FATIGUE [None]
